FAERS Safety Report 9069081 (Version 1)
Quarter: 2013Q1

REPORT INFORMATION
  Report Type: Spontaneous
  Country: FI (occurrence: FI)
  Receive Date: 20130215
  Receipt Date: 20130215
  Transmission Date: 20140127
  Serious: Yes (Hospitalization, Other)
  Sender: FDA-Public Use
  Company Number: FI-AMGEN-FINSP2013009995

PATIENT
  Age: 59 Year
  Sex: Female

DRUGS (10)
  1. XGEVA [Suspect]
     Indication: PRODUCT USED FOR UNKNOWN INDICATION
     Dosage: 120 MG, Q4WK
     Route: 058
  2. FEMAR [Concomitant]
     Dosage: 2.5 MG, QD
     Route: 048
  3. CALCICHEW [Concomitant]
     Dosage: 1000 MG, QD
     Route: 048
  4. CALCI CHEW D3 [Concomitant]
     Dosage: 500 MG, BID
     Route: 048
  5. DEXAMETHASONE [Concomitant]
     Indication: SWELLING
     Dosage: 1.5 MG, UNK
  6. LYRICA [Concomitant]
     Dosage: 75 MG, BID
  7. OMEPRAZOLE [Concomitant]
     Dosage: 40 MG, QD
     Route: 048
  8. PANADOL FORTE [Concomitant]
     Dosage: 1 G, TID
     Route: 048
  9. FRAGMIN [Concomitant]
     Indication: THROMBOSIS PROPHYLAXIS
     Dosage: 5000 IU, QD
     Route: 058
  10. LACTULOSE [Concomitant]
     Indication: CONSTIPATION

REACTIONS (2)
  - Pneumonia [Unknown]
  - Metastases to bone [Unknown]
